FAERS Safety Report 26068569 (Version 5)
Quarter: 2025Q4

REPORT INFORMATION
  Report Type: Report from Study
  Country: IL (occurrence: IL)
  Receive Date: 20251120
  Receipt Date: 20251223
  Transmission Date: 20260117
  Serious: Yes (Death, Hospitalization)
  Sender: ABBVIE
  Company Number: IL-ABBVIE-6552042

PATIENT
  Age: 75 Year
  Sex: Female

DRUGS (5)
  1. CARBIDOPA\LEVODOPA [Suspect]
     Active Substance: CARBIDOPA\LEVODOPA
     Indication: Parkinson^s disease
     Dosage: ADDITIONAL TUBE FILING 3.0 (ML), CONTINUOUS DOSAGE 2.5 (ML/H), EXTRA DOSAGE 1 (ML), THERAPY DURAT...
     Route: 050
     Dates: start: 20210912
  2. CARBIDOPA\LEVODOPA [Suspect]
     Active Substance: CARBIDOPA\LEVODOPA
     Dosage: MORNING DOSE 13.0 (ML), ADDITIONAL TUBE FILLING 3 ML, CONTINUOUS DOSAGE 2.5 (ML/H), EXTRA DOSAGE ...
     Route: 050
     Dates: start: 20240313, end: 20240313
  3. CARBIDOPA\LEVODOPA [Suspect]
     Active Substance: CARBIDOPA\LEVODOPA
     Dosage: MORNING DOSE 13.0 (ML), ADDITIONAL TUBE FILLING 3 ML, CONTINUOUS DOSAGE 2.5 (ML/H), EXTRA DOSAGE ...
     Route: 050
     Dates: start: 20240305, end: 20240305
  4. CARBIDOPA\LEVODOPA [Suspect]
     Active Substance: CARBIDOPA\LEVODOPA
     Dosage: MORNING DOSE 13.0 (ML), ADDITIONAL TUBE FILLING 3 ML, CONTINUOUS DOSAGE 2.5 (ML/H), EXTRA DOSAGE ...
     Route: 050
     Dates: start: 20240319, end: 20240319
  5. CARBIDOPA\LEVODOPA [Suspect]
     Active Substance: CARBIDOPA\LEVODOPA
     Route: 050

REACTIONS (6)
  - Death [Fatal]
  - Urinary tract infection [Unknown]
  - Pneumonia [Not Recovered/Not Resolved]
  - Oxygen saturation decreased [Unknown]
  - Aspiration [Not Recovered/Not Resolved]
  - Device leakage [Unknown]

NARRATIVE: CASE EVENT DATE: 20251221
